FAERS Safety Report 4314548-1 (Version None)
Quarter: 2004Q1

REPORT INFORMATION
  Report Type: 
  Country: None (occurrence: None)
  Receive Date: 20040309
  Receipt Date: 20040112
  Transmission Date: 20041129
  Serious: Yes (Other)
  Sender: FDA-Public Use
  Company Number: WAES 0401USA00806

PATIENT
  Age: 20 Year
  Sex: Female
  Weight: 96 kg

DRUGS (10)
  1. [THERAPY UNSPECIFIED] [Concomitant]
  2. DICLOFENAC SODIUM [Concomitant]
     Indication: ARTHRITIS
     Route: 048
     Dates: start: 20010801
  3. DICYCLOMINE HYDROCHLORIDE [Concomitant]
     Indication: IRRITABLE BOWEL SYNDROME
     Route: 048
     Dates: start: 20010501
  4. DOXEPIN HYDROCHLORIDE [Concomitant]
     Indication: IRRITABLE BOWEL SYNDROME
     Route: 048
     Dates: start: 19991201
  5. NEXIUM [Concomitant]
  6. ALLEGRA [Concomitant]
  7. COZAAR [Suspect]
     Indication: HYPERTENSION
     Route: 048
     Dates: start: 20040107, end: 20040107
  8. COZAAR [Suspect]
     Indication: BLOOD PRESSURE INCREASED
     Route: 048
     Dates: start: 20040107, end: 20040107
  9. DETROL LA [Concomitant]
     Indication: URINARY INCONTINENCE
     Dates: start: 20030401
  10. ACCOLATE [Concomitant]
     Indication: HYPERSENSITIVITY
     Route: 048
     Dates: start: 19990101

REACTIONS (5)
  - DYSPNOEA [None]
  - ERYTHEMA [None]
  - FACE OEDEMA [None]
  - HEADACHE [None]
  - WHEEZING [None]
